FAERS Safety Report 16528654 (Version 5)
Quarter: 2019Q4

REPORT INFORMATION
  Report Type: Report from Study
  Country: BR (occurrence: BR)
  Receive Date: 20190703
  Receipt Date: 20191014
  Transmission Date: 20200122
  Serious: Yes (Hospitalization, Other)
  Sender: FDA-Public Use
  Company Number: BR-GLAXOSMITHKLINE-BR2019AMR115624

PATIENT
  Age: 14 Year
  Sex: Female
  Weight: 33.7 kg

DRUGS (9)
  1. MEPOLIZUMAB [Suspect]
     Active Substance: MEPOLIZUMAB
     Indication: HYPEREOSINOPHILIC SYNDROME
     Dosage: 300 MG, UNK
     Route: 058
     Dates: start: 20190409
  2. MEPOLIZUMAB [Suspect]
     Active Substance: MEPOLIZUMAB
     Indication: ASTHMA
     Dosage: 100 MG, UNK
  3. SPIRONOLACTONE. [Concomitant]
     Active Substance: SPIRONOLACTONE
  4. PREDNISONE. [Suspect]
     Active Substance: PREDNISONE
     Indication: PRODUCT USED FOR UNKNOWN INDICATION
     Dosage: 5 MG, UNK
  5. SULFAMETHOXAZOLE + TMP [Concomitant]
     Active Substance: SULFAMETHOXAZOLE\TRIMETHOPRIM
     Indication: PROPHYLAXIS
  6. PREDNISONE. [Suspect]
     Active Substance: PREDNISONE
     Dosage: 40 UNK, UNK
  7. ATENOLOL. [Concomitant]
     Active Substance: ATENOLOL
  8. ALLOPURINOL. [Concomitant]
     Active Substance: ALLOPURINOL
  9. CALCIUM CARBONATE. [Concomitant]
     Active Substance: CALCIUM CARBONATE

REACTIONS (10)
  - Spinal compression fracture [Unknown]
  - Lumbar vertebral fracture [Unknown]
  - Back pain [Unknown]
  - Cardiac failure [Unknown]
  - Pulmonary congestion [Unknown]
  - Respiratory tract infection [Unknown]
  - Diarrhoea [Unknown]
  - Pneumonia [Unknown]
  - Lung infiltration [Unknown]
  - Weight decreased [Unknown]

NARRATIVE: CASE EVENT DATE: 20190620
